FAERS Safety Report 5281405-6 (Version None)
Quarter: 2007Q1

REPORT INFORMATION
  Report Type: 
  Country: None (occurrence: None)
  Receive Date: 20070328
  Receipt Date: 20070328
  Transmission Date: 20070707
  Serious: Yes (Other)
  Sender: FDA-Public Use
  Company Number: None

PATIENT
  Age: 17 Year
  Sex: Female
  Weight: 49.8957 kg

DRUGS (1)
  1. FEXOFENADINE HCL [Suspect]
     Indication: MULTIPLE ALLERGIES
     Dosage: 180 MG  DAILY  MOUTH
     Route: 048

REACTIONS (3)
  - BURNING SENSATION [None]
  - PHARMACEUTICAL PRODUCT COMPLAINT [None]
  - THROAT IRRITATION [None]
